FAERS Safety Report 13034678 (Version 1)
Quarter: 2016Q4

REPORT INFORMATION
  Report Type: Spontaneous
  Country: US (occurrence: US)
  Receive Date: 20161216
  Receipt Date: 20161216
  Transmission Date: 20170207
  Serious: No
  Sender: FDA-Public Use
  Company Number: None

PATIENT
  Age: 53 Year
  Sex: Female
  Weight: 95.9 kg

DRUGS (1)
  1. LISINOPRIL. [Suspect]
     Active Substance: LISINOPRIL
     Indication: HYPERTENSION
     Route: 048
     Dates: start: 20161029, end: 20161030

REACTIONS (5)
  - Lip swelling [None]
  - Swelling face [None]
  - Cough [None]
  - Swollen tongue [None]
  - Eye swelling [None]

NARRATIVE: CASE EVENT DATE: 20161030
